FAERS Safety Report 7651523-3 (Version None)
Quarter: 2011Q3

REPORT INFORMATION
  Report Type: 
  Country: None (occurrence: None)
  Receive Date: 20110802
  Receipt Date: 20110728
  Transmission Date: 20111222
  Serious: Yes (Death, Hospitalization)
  Sender: FDA-Public Use
  Company Number: PHHY2011BR67547

PATIENT
  Sex: Female
  Weight: 58 kg

DRUGS (9)
  1. EXELON [Suspect]
     Dosage: 18MG/5CM2 1 PATCH DAILY
     Route: 062
  2. SEROQUEL [Concomitant]
     Indication: RELAXATION THERAPY
     Dosage: 1 DF, QHS
     Route: 048
  3. EXELON [Suspect]
     Dosage: 9MG/5CM2 1 PATCH DAILY
     Route: 062
  4. OSTEONUTRI [Concomitant]
     Indication: CALCIUM DEFICIENCY
     Dosage: 1 DF, BID
  5. TOFRANIL [Concomitant]
     Dosage: 1 DF, TID
     Route: 048
  6. NEOZINE [Concomitant]
     Indication: SLEEP DISORDER
     Dosage: 20 DRP, DAILY
     Route: 048
  7. ROHYDORM [Concomitant]
     Indication: INSOMNIA
     Dosage: 1 DF, QD
     Route: 048
  8. DONAREN [Concomitant]
  9. GERIATON [Concomitant]

REACTIONS (3)
  - VOMITING [None]
  - RENAL FAILURE [None]
  - DIARRHOEA [None]
